FAERS Safety Report 5414933-0 (Version None)
Quarter: 2007Q3

REPORT INFORMATION
  Report Type: 
  Country: None (occurrence: None)
  Receive Date: 20070813
  Receipt Date: 20070813
  Transmission Date: 20080115
  Serious: Yes (Disabling)
  Sender: FDA-Public Use
  Company Number: None

PATIENT
  Age: 71 Year
  Sex: Male
  Weight: 64.4108 kg

DRUGS (1)
  1. GADOLINIUM TYCO [Suspect]
     Indication: NUCLEAR MAGNETIC RESONANCE IMAGING
     Dosage: ONCE
     Dates: start: 20060122

REACTIONS (1)
  - NEPHROGENIC SYSTEMIC FIBROSIS [None]
